FAERS Safety Report 7215259-5 (Version None)
Quarter: 2011Q1

REPORT INFORMATION
  Report Type: 
  Country: None (occurrence: None)
  Receive Date: 20110107
  Receipt Date: 20110104
  Transmission Date: 20110831
  Serious: Yes (Hospitalization)
  Sender: FDA-Public Use
  Company Number: AU-AMGEN-AUSCT2010007716

PATIENT
  Sex: Male

DRUGS (8)
  1. ROMIPLOSTIM [Suspect]
     Indication: IDIOPATHIC THROMBOCYTOPENIC PURPURA
     Dosage: 7 A?G/KG, QWK
     Route: 058
     Dates: end: 20101119
  2. PIOGLITAZONE [Concomitant]
     Dosage: 15 MG, QD
  3. ASPIRIN [Concomitant]
     Dosage: 100 MG, QD
     Dates: start: 20101129
  4. MIXTARD HUMAN 70/30 [Concomitant]
     Dosage: 50 UNIT, QD
  5. MIXTARD HUMAN 70/30 [Concomitant]
     Dosage: 30 UNIT, QHS
  6. AMLODIPINE [Concomitant]
     Dosage: 10 MG, QD
  7. AMOXYCILLIN                        /00249601/ [Concomitant]
     Dosage: 250 MG, QD
  8. PRAZOSIN HCL [Concomitant]
     Dosage: 1 MG, BID

REACTIONS (1)
  - TRANSIENT ISCHAEMIC ATTACK [None]
